FAERS Safety Report 11227153 (Version 1)
Quarter: 2015Q2

REPORT INFORMATION
  Report Type: Spontaneous
  Country: GB (occurrence: GB)
  Receive Date: 20150630
  Receipt Date: 20150630
  Transmission Date: 20150821
  Serious: Yes (Other)
  Sender: FDA-Public Use
  Company Number: GB-ACCORD-031789

PATIENT
  Age: 62 Year
  Sex: Male
  Weight: 62 kg

DRUGS (2)
  1. SIMVASTATIN. [Suspect]
     Active Substance: SIMVASTATIN
     Indication: BLOOD CHOLESTEROL
     Route: 048
     Dates: start: 20120201, end: 20120331
  2. METFORMIN/METFORMIN CHLOROPHENOXYACETATE/METFORMIN EMBONATE/METFORMIN HYDROCHLORIDE [Concomitant]

REACTIONS (5)
  - Pain in extremity [Recovered/Resolved]
  - Depression [Recovered/Resolved]
  - Hypoaesthesia [Recovered/Resolved]
  - Mood altered [Recovered/Resolved]
  - Peripheral coldness [Recovered/Resolved]

NARRATIVE: CASE EVENT DATE: 20120215
